FAERS Safety Report 8369827-8 (Version None)
Quarter: 2012Q1

REPORT INFORMATION
  Report Type: 
  Country: None (occurrence: None)
  Receive Date: 20120323
  Receipt Date: 20110808
  Transmission Date: 20120608
  Serious: Yes (Other)
  Sender: FDA-Public Use
  Company Number: 163-21880-11081054

PATIENT
  Age: 69 Year
  Sex: Male
  Weight: 78.7 kg

DRUGS (8)
  1. LORAZEPAM [Concomitant]
  2. LOVAZA [Concomitant]
  3. OMEPRAZOLE [Concomitant]
  4. ASPIRIN [Concomitant]
  5. SIMVASTATIN [Concomitant]
  6. METOPROLOL SUCCINATE [Concomitant]
  7. REVLIMID [Suspect]
     Indication: MANTLE CELL LYMPHOMA
     Dosage: 10 MG, 1 IN 1 D, PO : 5 MG, 1 IN 1 D, PO
     Route: 048
     Dates: start: 20110701, end: 20110802
  8. REVLIMID [Suspect]
     Indication: MANTLE CELL LYMPHOMA
     Dosage: 10 MG, 1 IN 1 D, PO : 5 MG, 1 IN 1 D, PO
     Route: 048
     Dates: start: 20110801

REACTIONS (1)
  - PLATELET COUNT DECREASED [None]
